FAERS Safety Report 4423423-3 (Version None)
Quarter: 2004Q3

REPORT INFORMATION
  Report Type: 
  Country: None (occurrence: None)
  Receive Date: 20040806
  Receipt Date: 20040728
  Transmission Date: 20050211
  Serious: Yes (Hospitalization)
  Sender: FDA-Public Use
  Company Number: 04P-167-0268578-00

PATIENT

DRUGS (2)
  1. HYTRIN [Suspect]
     Dosage: 2 MG, 1 IN 1 D, PER ORAL
     Route: 048
     Dates: start: 20040625, end: 20040727
  2. CLOZAPINE [Suspect]
     Dosage: 900 MG, 1 IN 1 D, PER ORAL
     Route: 048
     Dates: start: 20000101, end: 20040727

REACTIONS (1)
  - AGRANULOCYTOSIS [None]
